FAERS Safety Report 10149594 (Version 1)
Quarter: 2014Q2

REPORT INFORMATION
  Report Type: Spontaneous
  Country: US (occurrence: US)
  Receive Date: 20140502
  Receipt Date: 20140502
  Transmission Date: 20141212
  Serious: Yes (Death, Other)
  Sender: FDA-Public Use
  Company Number: US-PFIZER INC-2014120694

PATIENT
  Sex: Male

DRUGS (1)
  1. CHANTIX [Suspect]
     Dosage: UNK
     Dates: start: 2006

REACTIONS (5)
  - Completed suicide [Fatal]
  - Loss of consciousness [Unknown]
  - Depression [Unknown]
  - Aggression [Unknown]
  - Abnormal behaviour [Unknown]
